FAERS Safety Report 4497563-7 (Version None)
Quarter: 2004Q4

REPORT INFORMATION
  Report Type: 
  Country: None (occurrence: None)
  Receive Date: 20041108
  Receipt Date: 20040622
  Transmission Date: 20050328
  Serious: Yes (Other)
  Sender: FDA-Public Use
  Company Number: BE-JNJFOC-20040604960

PATIENT
  Age: 12 Month
  Sex: Male

DRUGS (2)
  1. PROPULSID [Suspect]
     Route: 049
     Dates: start: 20031201, end: 20040301
  2. PROPULSID [Suspect]
     Route: 049
     Dates: start: 20031201, end: 20040301

REACTIONS (1)
  - NO ADVERSE DRUG EFFECT [None]
